FAERS Safety Report 8203907-2 (Version None)
Quarter: 2012Q1

REPORT INFORMATION
  Report Type: 
  Country: None (occurrence: None)
  Receive Date: 20120313
  Receipt Date: 20120302
  Transmission Date: 20120608
  Serious: Yes (Other)
  Sender: FDA-Public Use
  Company Number: US-SANOFI-AVENTIS-2012SA009622

PATIENT
  Age: 68 Year
  Sex: Female
  Weight: 55.33 kg

DRUGS (14)
  1. DIOVAN [Concomitant]
     Indication: BLOOD PRESSURE
     Route: 048
  2. BENTYL [Concomitant]
  3. ACETAMINOPHEN AND HYDROCODONE BITARTRATE [Concomitant]
     Indication: PAIN
     Dosage: 5/50 MG
     Dates: start: 20090101
  4. RIFAXIMIN [Concomitant]
  5. CARAFATE [Concomitant]
  6. MULTI-VITAMINS [Concomitant]
  7. PLAVIX [Suspect]
     Indication: STENT PLACEMENT
     Route: 048
  8. LASIX [Concomitant]
     Dates: start: 20100101
  9. ACETAMINOPHEN AND HYDROCODONE BITARTRATE [Concomitant]
     Dosage: 5/50 MG
     Dates: start: 20090101
  10. SPIRONOLACTONE [Concomitant]
     Indication: FLUID RETENTION
     Route: 048
     Dates: start: 20100101
  11. ZOFRAN [Concomitant]
  12. PLAVIX [Suspect]
     Route: 048
  13. PLAVIX [Suspect]
     Route: 048
     Dates: start: 20110201
  14. PLAVIX [Suspect]
     Route: 048
     Dates: start: 20110201

REACTIONS (13)
  - ULCER [None]
  - RECTAL HAEMORRHAGE [None]
  - COELIAC ARTERY OCCLUSION [None]
  - PAIN [None]
  - WEIGHT DECREASED [None]
  - ASCITES [None]
  - ANAEMIA [None]
  - HAEMORRHAGIC DIATHESIS [None]
  - DIARRHOEA [None]
  - EPISTAXIS [None]
  - NAUSEA [None]
  - CONTUSION [None]
  - VOMITING [None]
